FAERS Safety Report 10273057 (Version 1)
Quarter: 2014Q2

REPORT INFORMATION
  Report Type: Spontaneous
  Country: US (occurrence: None)
  Receive Date: 20140627
  Receipt Date: 20140627
  Transmission Date: 20141212
  Serious: Yes (Life-Threatening, Hospitalization)
  Sender: FDA-Public Use
  Company Number: None

PATIENT
  Age: 80 Year
  Sex: Male
  Weight: 64.1 kg

DRUGS (2)
  1. FLUOROURACIL [Suspect]
     Indication: ANAL SQUAMOUS CELL CARCINOMA
     Route: 042
     Dates: start: 20140519, end: 20140522
  2. MITOMYCIN [Suspect]
     Indication: ANAL SQUAMOUS CELL CARCINOMA
     Route: 042
     Dates: start: 20140519

REACTIONS (16)
  - Odynophagia [None]
  - Sepsis [None]
  - Neutropenia [None]
  - Thrombocytopenia [None]
  - Nausea [None]
  - Vomiting [None]
  - Hypotension [None]
  - Vomiting [None]
  - Stomatitis [None]
  - Asthenia [None]
  - Respiratory depression [None]
  - Mouth haemorrhage [None]
  - Sinus tachycardia [None]
  - Mental status changes [None]
  - International normalised ratio abnormal [None]
  - Dysphagia [None]
